FAERS Safety Report 14930891 (Version 1)
Quarter: 2018Q2

REPORT INFORMATION
  Report Type: Spontaneous
  Country: US (occurrence: US)
  Receive Date: 20180524
  Receipt Date: 20180524
  Transmission Date: 20180711
  Serious: No
  Sender: FDA-Public Use
  Company Number: US-BAUSCH-BL-2017-021691

PATIENT
  Age: 90 Year
  Sex: Female

DRUGS (4)
  1. PROLENSA [Suspect]
     Active Substance: BROMFENAC SODIUM
     Indication: ERYTHEMA
     Dosage: LEFT EYE
     Route: 047
     Dates: start: 2017, end: 201707
  2. PROLENSA [Suspect]
     Active Substance: BROMFENAC SODIUM
     Indication: SWELLING
  3. SOOTHE NIGHT TIME [Suspect]
     Active Substance: MINERAL OIL\PETROLATUM
     Indication: DRY EYE
     Dosage: ONCE AT NIGHT
     Route: 047
     Dates: start: 2012
  4. PROLENSA [Suspect]
     Active Substance: BROMFENAC SODIUM
     Indication: PRURITUS

REACTIONS (8)
  - Burning sensation [Unknown]
  - Product physical consistency issue [Unknown]
  - Drug ineffective [Recovered/Resolved]
  - Off label use [Recovered/Resolved]
  - Lip swelling [Unknown]
  - Pruritus [Not Recovered/Not Resolved]
  - Erythema [Not Recovered/Not Resolved]
  - Skin swelling [Not Recovered/Not Resolved]

NARRATIVE: CASE EVENT DATE: 2017
